FAERS Safety Report 21304042 (Version 10)
Quarter: 2023Q1

REPORT INFORMATION
  Report Type: Report from Study
  Country: BR (occurrence: BR)
  Receive Date: 20220907
  Receipt Date: 20230209
  Transmission Date: 20230417
  Serious: Yes (Life-Threatening, Hospitalization)
  Sender: FDA-Public Use
  Company Number: BR-JNJFOC-20220865040

PATIENT
  Age: 75 Year
  Sex: Female
  Weight: 47.3 kg

DRUGS (10)
  1. AMIVANTAMAB [Suspect]
     Active Substance: AMIVANTAMAB
     Indication: Non-small cell lung cancer metastatic
     Dosage: DATE OF MOST RECENT DOSE: 27-JAN-2022
     Route: 042
     Dates: start: 20211028
  2. BISOPROLOL [Concomitant]
     Active Substance: BISOPROLOL
     Indication: Hypertension
     Route: 048
     Dates: start: 20211014
  3. BETAMETHASONE DIPROPIONATE;GENTAMICIN [Concomitant]
     Indication: Paronychia
     Route: 061
     Dates: start: 20211202
  4. FLUOXETINE HYDROCHLORIDE [Concomitant]
     Active Substance: FLUOXETINE HYDROCHLORIDE
     Indication: Depressed mood
     Route: 048
     Dates: start: 20211202
  5. DOXYCYCLINE [Concomitant]
     Active Substance: DOXYCYCLINE
     Indication: Paronychia
     Route: 048
     Dates: start: 20211209
  6. METOCLOPRAMIDE [Concomitant]
     Active Substance: METOCLOPRAMIDE
     Indication: Nausea
     Dosage: FREQUENCY; TID
     Route: 048
     Dates: start: 20220208
  7. DIPYRONE [Concomitant]
     Active Substance: DIPYRONE
     Indication: Chest pain
     Route: 048
     Dates: start: 20220602
  8. METHADONE [Concomitant]
     Active Substance: METHADONE HYDROCHLORIDE
     Indication: Chest pain
     Route: 048
     Dates: start: 20220603, end: 20220817
  9. PIPERACILLIN SODIUM\TAZOBACTAM SODIUM [Concomitant]
     Active Substance: PIPERACILLIN SODIUM\TAZOBACTAM SODIUM
     Indication: Pneumonia
     Dosage: DOSE: TID
     Route: 042
     Dates: start: 20220726, end: 20220805
  10. VERUTEX B [Concomitant]
     Indication: Pleurodesis
     Route: 061
     Dates: start: 20220815

REACTIONS (2)
  - Fatigue [Recovered/Resolved]
  - Respiratory failure [Not Recovered/Not Resolved]

NARRATIVE: CASE EVENT DATE: 20220817
